FAERS Safety Report 9205467 (Version 1)
Quarter: 2013Q2

REPORT INFORMATION
  Report Type: Spontaneous
  Country: US (occurrence: US)
  Receive Date: 20130403
  Receipt Date: 20130403
  Transmission Date: 20140414
  Serious: Yes (Other)
  Sender: FDA-Public Use
  Company Number: US-AMGEN-USASP2013021714

PATIENT
  Age: 68 Year
  Sex: Female

DRUGS (7)
  1. PROLIA [Suspect]
     Indication: OSTEOPOROSIS POSTMENOPAUSAL
     Dosage: 60 MG, UNK
     Dates: start: 20130320
  2. COUMADIN                           /00014802/ [Concomitant]
  3. VITAMIN D /00107901/ [Concomitant]
  4. ATENOLOL [Concomitant]
  5. LORTAB                             /00607101/ [Concomitant]
  6. LORAZEPAM [Concomitant]
  7. VALTREX [Concomitant]

REACTIONS (6)
  - Post procedural haemorrhage [Unknown]
  - Procedural pain [Unknown]
  - Pain in jaw [Unknown]
  - Sensitivity of teeth [Unknown]
  - Tooth disorder [Unknown]
  - Ear disorder [Unknown]
